FAERS Safety Report 9420114 (Version 1)
Quarter: 2013Q3

REPORT INFORMATION
  Report Type: Spontaneous
  Country: ES (occurrence: ES)
  Receive Date: 20130725
  Receipt Date: 20130725
  Transmission Date: 20140515
  Serious: Yes (Hospitalization)
  Sender: FDA-Public Use
  Company Number: ES-GLAXOSMITHKLINE-B0910745A

PATIENT
  Age: 74 Year
  Sex: Male

DRUGS (1)
  1. VOTRIENT [Suspect]
     Indication: RENAL CANCER STAGE IV
     Route: 048
     Dates: start: 20120720, end: 20121130

REACTIONS (3)
  - Plantar erythema [Recovered/Resolved]
  - Hyperkeratosis [Recovered/Resolved]
  - Diarrhoea [Recovered/Resolved]
